FAERS Safety Report 8888942 (Version 1)
Quarter: 2012Q4

REPORT INFORMATION
  Report Type: 
  Country: QA (occurrence: QA)
  Receive Date: 20121106
  Receipt Date: 20121106
  Transmission Date: 20130627
  Serious: Yes (Death, Hospitalization, Other)
  Sender: FDA-Public Use
  Company Number: PHHY2012QA100251

PATIENT
  Age: 60 Year
  Sex: Female

DRUGS (9)
  1. ATORVASTATIN [Suspect]
     Indication: HYPERLIPIDAEMIA
     Dosage: 20 mg, daily
  2. OMEPRAZOLE [Interacting]
     Indication: PROPHYLAXIS
     Dosage: 20 mg, daily
  3. DEXAMETHASONE [Interacting]
     Indication: SPINAL CORD COMPRESSION
     Dosage: 6 mg, BID
  4. DEXAMETHASONE [Interacting]
     Dosage: 6 mg, BID
  5. CALCIUM CARBONATE [Concomitant]
  6. TRAMADOL [Concomitant]
     Indication: PAIN
  7. CELECOXIB [Concomitant]
     Indication: BONE PAIN
  8. GABAPENTIN [Concomitant]
     Indication: NEURALGIA
  9. BISACODYL [Concomitant]
     Indication: CONSTIPATION

REACTIONS (8)
  - Urosepsis [Fatal]
  - Escherichia infection [Fatal]
  - Rhabdomyolysis [Unknown]
  - Lethargy [Unknown]
  - Myalgia [Unknown]
  - Muscular weakness [Unknown]
  - Dyspnoea [Unknown]
  - Drug interaction [Unknown]
